FAERS Safety Report 16188021 (Version 3)
Quarter: 2019Q2

REPORT INFORMATION
  Report Type: Spontaneous
  Country: FR (occurrence: FR)
  Receive Date: 20190412
  Receipt Date: 20190513
  Transmission Date: 20190711
  Serious: Yes (Hospitalization, Other)
  Sender: FDA-Public Use
  Company Number: FR-AUROBINDO-AUR-APL-2019-018907

PATIENT

DRUGS (7)
  1. VORICONAZOLE. [Suspect]
     Active Substance: VORICONAZOLE
     Indication: BRONCHOPULMONARY ASPERGILLOSIS
     Dosage: UNK
     Route: 042
  2. METHYLPREDNISOLONE. [Interacting]
     Active Substance: METHYLPREDNISOLONE
     Indication: BRAIN OEDEMA
  3. METHYLPREDNISOLONE. [Interacting]
     Active Substance: METHYLPREDNISOLONE
     Indication: CEREBRAL ASPERGILLOSIS
     Dosage: UNK
     Route: 065
  4. VORICONAZOLE. [Interacting]
     Active Substance: VORICONAZOLE
     Indication: ACUTE RESPIRATORY DISTRESS SYNDROME
     Dosage: 300 MILLIGRAM, TWO TIMES A DAY
     Route: 042
  5. VORICONAZOLE. [Interacting]
     Active Substance: VORICONAZOLE
     Dosage: 300 MILLIGRAM, ONCE A DAY
     Route: 065
  6. VORICONAZOLE. [Interacting]
     Active Substance: VORICONAZOLE
     Dosage: 350 MILLIGRAM
     Route: 065
  7. VORICONAZOLE. [Interacting]
     Active Substance: VORICONAZOLE
     Dosage: 600 MILLIGRAM, ONCE A DAY
     Route: 042

REACTIONS (4)
  - Aspergillus test positive [Recovered/Resolved]
  - Drug level decreased [Recovered/Resolved]
  - Drug interaction [Recovered/Resolved]
  - Treatment failure [Recovered/Resolved]
